FAERS Safety Report 8800150 (Version 1)
Quarter: 2012Q4

REPORT INFORMATION
  Report Type: Spontaneous
  Country: US (occurrence: None)
  Receive Date: 20120918
  Receipt Date: 20120918
  Transmission Date: 20130627
  Serious: Yes (Hospitalization)
  Sender: FDA-Public Use
  Company Number: None

PATIENT
  Age: 80 Year
  Sex: Female
  Weight: 85.28 kg

DRUGS (2)
  1. VICODIN 5/500 [Suspect]
     Indication: CHRONIC BACK PAIN
     Route: 048
     Dates: start: 20120626, end: 20120626
  2. VICODIN 5/500 [Suspect]
     Indication: SPINAL COLUMN STENOSIS
     Route: 048
     Dates: start: 20120626, end: 20120626

REACTIONS (2)
  - Oxygen saturation decreased [None]
  - No therapeutic response [None]
